FAERS Safety Report 23292392 (Version 1)
Quarter: 2023Q4

REPORT INFORMATION
  Report Type: Other
  Country: None (occurrence: IT)
  Receive Date: 20231213
  Receipt Date: 20231213
  Transmission Date: 20240109
  Serious: Yes (Life-Threatening)
  Sender: FDA-Public Use
  Company Number: IT-B.Braun Medical Inc.-2149263

PATIENT
  Age: 78 Year
  Sex: Female

DRUGS (1)
  1. CEFTRIAXONE SODIUM [Suspect]
     Active Substance: CEFTRIAXONE SODIUM
     Indication: Pneumonia

REACTIONS (1)
  - Kounis syndrome [None]
